FAERS Safety Report 7868294-8 (Version None)
Quarter: 2011Q4

REPORT INFORMATION
  Report Type: 
  Country: None (occurrence: None)
  Receive Date: 20111028
  Receipt Date: 20101222
  Transmission Date: 20120403
  Serious: Yes (Hospitalization)
  Sender: FDA-Public Use
  Company Number: US-AMGEN-USASP2010007186

PATIENT
  Age: 64 Year
  Sex: Female
  Weight: 56.689 kg

DRUGS (3)
  1. TYLENOL                            /00435101/ [Concomitant]
     Dosage: UNK UNK, TID
  2. PLAQUENIL [Concomitant]
     Dosage: 200 UNK, BID
  3. ENBREL [Suspect]
     Indication: RHEUMATOID ARTHRITIS
     Dosage: 50 MG, QWK
     Dates: start: 20021211

REACTIONS (5)
  - RHEUMATOID ARTHRITIS [None]
  - DIVERTICULITIS [None]
  - CHILLS [None]
  - NASOPHARYNGITIS [None]
  - ABSCESS INTESTINAL [None]
